FAERS Safety Report 11802716 (Version 1)
Quarter: 2015Q4

REPORT INFORMATION
  Report Type: Spontaneous
  Country: CH (occurrence: GB)
  Receive Date: 20151204
  Receipt Date: 20151204
  Transmission Date: 20160305
  Serious: Yes (Other)
  Sender: FDA-Public Use
  Company Number: CH-LPDUSPRD-20150962

PATIENT
  Age: 48 Year
  Sex: Female
  Weight: 110 kg

DRUGS (10)
  1. QVAR [Concomitant]
     Active Substance: BECLOMETHASONE DIPROPIONATE
     Dosage: 1 DF, 2 IN 1 D
     Route: 055
     Dates: start: 20140915
  2. MONTELUKAST [Concomitant]
     Active Substance: MONTELUKAST SODIUM
     Dosage: 1 DF, 1 IN 1 D
     Route: 065
     Dates: start: 20140915
  3. NARARIPTAN [Concomitant]
     Dosage: DOSE NOT SPECIFIED
     Route: 065
     Dates: start: 20150519
  4. PENTASA [Concomitant]
     Active Substance: MESALAMINE
     Dosage: 4 DF, 2 IN 1 D
     Route: 065
     Dates: start: 20140427
  5. LEVOTHYROXINE. [Concomitant]
     Active Substance: LEVOTHYROXINE
     Dosage: 1 DF, 1 IN 1 D
     Route: 065
     Dates: start: 20150428
  6. FERINJECT [Suspect]
     Active Substance: FERRIC CARBOXYMALTOSE
     Dosage: DOSE NOT PROVIDED
     Route: 065
     Dates: start: 20150814
  7. SALBUTAMOL [Concomitant]
     Active Substance: ALBUTEROL
     Dosage: DOSE NOT PROVIDED
     Route: 065
  8. BECONASE AQ [Concomitant]
     Active Substance: BECLOMETHASONE DIPROPIONATE MONOHYDRATE
     Dosage: 2 DF, 2 IN 1 D
     Route: 065
     Dates: start: 20140915
  9. LANSOPRAZOLE. [Concomitant]
     Active Substance: LANSOPRAZOLE
     Dosage: 1 DF, 1 IN 1 D
     Route: 065
     Dates: start: 20150428
  10. AMOROLFINE [Concomitant]
     Active Substance: AMOROLFINE
     Dosage: DOSE NOT PROVIDED
     Route: 065
     Dates: start: 20151013

REACTIONS (4)
  - Pyrexia [Unknown]
  - Arthralgia [Unknown]
  - Fatigue [Unknown]
  - Bone pain [Unknown]

NARRATIVE: CASE EVENT DATE: 20150814
